FAERS Safety Report 4426680-2 (Version None)
Quarter: 2004Q3

REPORT INFORMATION
  Report Type: 
  Country: None (occurrence: None)
  Receive Date: 20040816
  Receipt Date: 20040706
  Transmission Date: 20050211
  Serious: Yes (Hospitalization)
  Sender: FDA-Public Use
  Company Number: AU-MERCK-0407AUS00066

PATIENT
  Sex: Female

DRUGS (8)
  1. ACETAMINOPHEN [Concomitant]
     Route: 065
  2. GARLIC EXTRACT [Concomitant]
     Route: 065
     Dates: end: 20030101
  3. GLUCOSAMINE HYDROCHLORIDE [Concomitant]
     Route: 065
  4. HERBS (UNSPECIFIED) [Concomitant]
     Route: 065
     Dates: end: 20030101
  5. LEVOTHYROXINE SODIUM [Concomitant]
     Route: 065
  6. PHENYTOIN [Concomitant]
     Route: 065
  7. PRAVASTATIN SODIUM [Concomitant]
     Route: 065
  8. VIOXX [Suspect]
     Indication: OSTEOARTHRITIS
     Route: 048
     Dates: start: 20020208, end: 20031001

REACTIONS (8)
  - BRAIN OEDEMA [None]
  - CARDIAC DISORDER [None]
  - CARDIAC MURMUR [None]
  - CHEST PAIN [None]
  - HEADACHE [None]
  - OEDEMA [None]
  - OEDEMA PERIPHERAL [None]
  - PERICARDIAL EFFUSION [None]
